FAERS Safety Report 7395298-4 (Version None)
Quarter: 2011Q2

REPORT INFORMATION
  Report Type: 
  Country: None (occurrence: None)
  Receive Date: 20110405
  Receipt Date: 20110331
  Transmission Date: 20111010
  Serious: Yes (Other)
  Sender: FDA-Public Use
  Company Number: FR-PFIZER INC-2011071881

PATIENT
  Age: 52 Year
  Sex: Male

DRUGS (3)
  1. CARDENSIEL [Concomitant]
     Dosage: UNK
  2. TAHOR [Suspect]
     Indication: CORONARY ARTERY BYPASS
     Dosage: 40 MG, 1X/DAY
     Route: 048
     Dates: start: 20100801, end: 20110330
  3. KARDEGIC [Concomitant]
     Dosage: 1 DF, 1X/DAY

REACTIONS (7)
  - LOSS OF CONSCIOUSNESS [None]
  - SYNCOPE [None]
  - NAUSEA [None]
  - DIARRHOEA [None]
  - HYPOTHERMIA [None]
  - ABDOMINAL PAIN [None]
  - VOMITING [None]
